FAERS Safety Report 18689286 (Version 1)
Quarter: 2020Q4

REPORT INFORMATION
  Report Type: Spontaneous
  Country: RO (occurrence: RO)
  Receive Date: 20201231
  Receipt Date: 20201231
  Transmission Date: 20210114
  Serious: Yes (Other)
  Sender: FDA-Public Use
  Company Number: RO-GRANULES-RO-2020GRALIT00124

PATIENT
  Age: 76 Year
  Sex: Male

DRUGS (4)
  1. RIFAXIMINE [Interacting]
     Active Substance: RIFAXIMIN
     Indication: RECTAL ULCER
     Route: 048
  2. HYALURONIC ACID [Interacting]
     Active Substance: HYALURONIC ACID
     Route: 065
  3. IBUPROFEN. [Suspect]
     Active Substance: IBUPROFEN
     Indication: INFLUENZA LIKE ILLNESS
  4. IBUPROFEN. [Suspect]
     Active Substance: IBUPROFEN
     Indication: UPPER RESPIRATORY TRACT INFECTION
     Dosage: 2 TABLETS OF IBUPROFEN OF 600MG
     Route: 048

REACTIONS (6)
  - Anorectal discomfort [Recovered/Resolved]
  - Self-medication [Unknown]
  - Rectal haemorrhage [Recovered/Resolved]
  - Condition aggravated [Recovered/Resolved]
  - Rectal ulcer [Recovered/Resolved]
  - Product use in unapproved indication [Unknown]

NARRATIVE: CASE EVENT DATE: 201602
